FAERS Safety Report 5657103-3 (Version None)
Quarter: 2008Q1

REPORT INFORMATION
  Report Type: 
  Country: None (occurrence: None)
  Receive Date: 20080310
  Receipt Date: 20080225
  Transmission Date: 20080703
  Serious: Yes (Life-Threatening)
  Sender: FDA-Public Use
  Company Number: JP-ROCHE-546347

PATIENT
  Age: 50 Year
  Sex: Female
  Weight: 54 kg

DRUGS (7)
  1. CELLCEPT [Suspect]
     Route: 048
     Dates: start: 20030401, end: 20070227
  2. CELLCEPT [Suspect]
     Dosage: RESTARTED.
     Route: 048
     Dates: start: 20070404
  3. NEORAL [Suspect]
     Route: 048
     Dates: start: 20030401, end: 20070227
  4. NEORAL [Suspect]
     Dosage: RESTARTED.
     Route: 048
     Dates: start: 20070404
  5. MEDROL [Concomitant]
     Route: 048
  6. NU-LOTAN [Concomitant]
     Route: 048
     Dates: end: 20070227
  7. HALCION [Concomitant]
     Route: 048
     Dates: end: 20070227

REACTIONS (1)
  - MENINGITIS PNEUMOCOCCAL [None]
